FAERS Safety Report 7956855-7 (Version None)
Quarter: 2011Q4

REPORT INFORMATION
  Report Type: 
  Country: None (occurrence: None)
  Receive Date: 20111205
  Receipt Date: 20111031
  Transmission Date: 20120403
  Serious: No
  Sender: FDA-Public Use
  Company Number: US-BAYER-2011-106689

PATIENT
  Age: 80 Year
  Sex: Female
  Weight: 76 kg

DRUGS (5)
  1. SIMVASTATIINI ENNAPHARMA [Concomitant]
  2. AMLODIPINE [Concomitant]
  3. LEVOTHYROXINE SODIUM [Concomitant]
  4. URSODIOL [Concomitant]
  5. ALEVE (CAPLET) [Suspect]
     Indication: BONE PAIN
     Dosage: 2 DF, BID
     Route: 048

REACTIONS (1)
  - NO ADVERSE EVENT [None]
